FAERS Safety Report 9955021 (Version 2)
Quarter: 2014Q1

REPORT INFORMATION
  Report Type: Spontaneous
  Country: US (occurrence: US)
  Receive Date: 20140304
  Receipt Date: 20140304
  Transmission Date: 20141002
  Serious: No
  Sender: FDA-Public Use
  Company Number: US-ABBVIE-12P-163-0945777-00

PATIENT
  Sex: 0

DRUGS (1)
  1. HUMIRA 40 MG/ 0.8 ML PRE-FILLED SYRINGE [Suspect]
     Indication: PSORIASIS

REACTIONS (6)
  - Malaise [Unknown]
  - Asthenia [Unknown]
  - Oropharyngeal pain [Unknown]
  - Nausea [Unknown]
  - Dry throat [Unknown]
  - Tinnitus [Not Recovered/Not Resolved]
